FAERS Safety Report 9085999 (Version 1)
Quarter: 2013Q1

REPORT INFORMATION
  Report Type: Report from Study
  Country: US (occurrence: US)
  Receive Date: 20130131
  Receipt Date: 20130131
  Transmission Date: 20140127
  Serious: No
  Sender: FDA-Public Use
  Company Number: US-ABBOTT-12P-163-0995731-00

PATIENT
  Sex: Female
  Weight: 106.69 kg

DRUGS (10)
  1. HUMIRA [Suspect]
     Indication: PSORIATIC ARTHROPATHY
     Dates: start: 20120925
  2. METFORMIN (NON-ABBOTT) [Concomitant]
     Indication: DIABETES MELLITUS
  3. METOPROLOL (NON-ABBOTT) [Concomitant]
     Indication: HYPERTENSION
  4. INDAPAMIDE [Concomitant]
     Indication: HYPERTENSION
  5. AMLODIPINE (NON-ABBOTT) [Concomitant]
     Indication: HYPERTENSION
  6. SERTRALINE (NON-ABBOTT) [Concomitant]
     Indication: DEPRESSION
  7. MELOXICAM [Concomitant]
     Indication: PSORIATIC ARTHROPATHY
  8. NUVIGIL [Concomitant]
     Indication: SOMNOLENCE
  9. TRAMDOL (NON-ABBOTT) [Concomitant]
     Indication: PAIN
  10. HYDROCODONE (NON-ABBOTT) [Concomitant]
     Indication: PAIN

REACTIONS (1)
  - Injection site pain [Recovered/Resolved]
